FAERS Safety Report 8164514-3 (Version None)
Quarter: 2012Q1

REPORT INFORMATION
  Report Type: 
  Country: None (occurrence: None)
  Receive Date: 20120224
  Receipt Date: 20120220
  Transmission Date: 20120608
  Serious: Yes (Death, Hospitalization)
  Sender: FDA-Public Use
  Company Number: JP-ASTRAZENECA-2012SE06455

PATIENT
  Age: 28 Year
  Sex: Female

DRUGS (16)
  1. MYCOPHENOLATE MOFETIL [Suspect]
     Indication: PROPHYLAXIS AGAINST GRAFT VERSUS HOST DISEASE
     Dosage: 2000 MG/DAY FROM DAY 1 BEFORE SECOND CBT
     Route: 048
  2. FOSCAVIR [Suspect]
     Route: 042
     Dates: start: 20110603
  3. ANTI-THYMOCYTE GLOBULIN NOS [Suspect]
     Dosage: 2.5 MG/KG STARTING ON DAY -4 DURING THIRD CBT
     Route: 065
  4. FLUDARABINE PHOSPHATE [Suspect]
     Dosage: 25 MG/M2 STARTING ON DAY -7 DURING SECOND CBT
     Route: 065
  5. FOSCAVIR [Suspect]
     Route: 042
     Dates: start: 20110420
  6. CYCLOPHOSPHAMIDE [Suspect]
     Dosage: 60 MG/KG ON DAY-7 AND -6 DURING THIRD CBT
     Route: 065
  7. CYCLOSPORINE [Suspect]
     Indication: PROPHYLAXIS AGAINST GRAFT VERSUS HOST DISEASE
     Dosage: 3 MG/KG/DAY STARTING FROM DAY 1 BEFORE THE THIRD CBT
     Route: 065
  8. FOSCAVIR [Suspect]
     Indication: ENCEPHALITIS CYTOMEGALOVIRUS
     Route: 042
  9. BUSULFAN [Suspect]
     Dosage: 4 MG/KG STARTING ON DAY -7 DURING SECOND CBT
     Route: 065
  10. METHOTREXATE [Suspect]
     Indication: PROPHYLAXIS AGAINST GRAFT VERSUS HOST DISEASE
     Dosage: 2000 MG/DAY FROM DAY 1 BEFORE SECOND CBT
     Route: 065
  11. METHYLPREDNISOLONE [Suspect]
     Dosage: 80 MG/DAY ON DAY -3 DURING THIRD CBT
     Route: 065
  12. TBI/TLI [Suspect]
     Dosage: 7.25 GY, DAY -1 DURING THIRD CBT
     Route: 065
  13. TACROLIMUS [Suspect]
     Indication: PROPHYLAXIS AGAINST GRAFT VERSUS HOST DISEASE
     Dosage: 0.2 MG/KG/DAY FROM DAY 1 BEFORE SECOND CBT
     Route: 065
  14. CYCLOPHOSPHAMIDE [Suspect]
     Dosage: 50 MG/KG ON DAY-3 AND -2 DURING FIRST CBT
     Route: 065
  15. TBI/TLI [Suspect]
     Dosage: 12 GY/6 FRACTIONS ON DAY -7. -6 AND -4 DURING FIRST CBT
     Route: 065
  16. METHYLPREDNISOLONE [Suspect]
     Dosage: 40 MG/DAY ON DAY -4 DURING THIRD CBT
     Route: 065

REACTIONS (5)
  - CYTOMEGALOVIRUS VIRAEMIA [None]
  - ENCEPHALITIS CYTOMEGALOVIRUS [None]
  - RENAL FAILURE [None]
  - OLIGURIA [None]
  - OEDEMA PERIPHERAL [None]
